FAERS Safety Report 22354428 (Version 1)
Quarter: 2023Q2

REPORT INFORMATION
  Report Type: Spontaneous
  Country: US (occurrence: None)
  Receive Date: 20230522
  Receipt Date: 20230522
  Transmission Date: 20230722
  Serious: Yes (Other)
  Sender: FDA-Public Use
  Company Number: None

PATIENT
  Age: 31 Year
  Sex: Female
  Weight: 49.5 kg

DRUGS (2)
  1. HYDROCORTISONE [Suspect]
     Active Substance: HYDROCORTISONE
     Indication: Adrenal insufficiency
     Dosage: OTHER QUANTITY : 90 TABLET(S);?
     Route: 048
  2. LUNESTA [Concomitant]
     Active Substance: ESZOPICLONE

REACTIONS (5)
  - Abdominal pain [None]
  - Abdominal pain [None]
  - Abdominal rigidity [None]
  - Diarrhoea [None]
  - Gastrointestinal haemorrhage [None]

NARRATIVE: CASE EVENT DATE: 20230517
